FAERS Safety Report 5138451-2 (Version None)
Quarter: 2006Q4

REPORT INFORMATION
  Report Type: 
  Country: None (occurrence: None)
  Receive Date: 20061030
  Receipt Date: 20060227
  Transmission Date: 20070319
  Serious: No
  Sender: FDA-Public Use
  Company Number: US-GLAXOSMITHKLINE-A0595333A

PATIENT
  Age: 57 Year
  Sex: Male

DRUGS (22)
  1. ADVAIR HFA [Suspect]
     Indication: CHRONIC OBSTRUCTIVE PULMONARY DISEASE
     Dosage: 1PUFF PER DAY
     Route: 055
     Dates: start: 20060101
  2. K-DUR 10 [Concomitant]
  3. LASIX [Concomitant]
  4. ALTACE [Concomitant]
  5. LIPITOR [Concomitant]
  6. HYTRIN [Concomitant]
  7. HYDROCHLOROTHIAZIDE [Concomitant]
  8. PROVIGIL [Concomitant]
  9. SINGULAIR [Concomitant]
  10. ALBUTEROL [Concomitant]
  11. SPIRIVA [Concomitant]
  12. TRAZODONE HCL [Concomitant]
  13. XANAX [Concomitant]
  14. PAXIL [Concomitant]
  15. FIORICET [Concomitant]
  16. HYDROMORPHONE HCL [Concomitant]
  17. AMARYL [Concomitant]
  18. PLAVIX [Concomitant]
  19. METHADOSE [Concomitant]
  20. MIRALAX [Concomitant]
  21. ZOFRAN [Concomitant]
  22. NEXIUM [Concomitant]

REACTIONS (1)
  - DYSPHONIA [None]
